FAERS Safety Report 13141935 (Version 1)
Quarter: 2017Q1

REPORT INFORMATION
  Report Type: Spontaneous
  Country: US (occurrence: US)
  Receive Date: 20170123
  Receipt Date: 20170123
  Transmission Date: 20170428
  Serious: Yes (Other)
  Sender: FDA-Public Use
  Company Number: None

PATIENT
  Age: 60 Year
  Sex: Female

DRUGS (1)
  1. LIDOCAINE WITH EPINEPHRINE APP FRESENIUS KABI USA, LLC [Suspect]
     Active Substance: EPINEPHRINE BITARTRATE\LIDOCAINE HYDROCHLORIDE
     Indication: LOCAL ANAESTHESIA
     Dosage: ?          OTHER FREQUENCY:ONCE;?
     Route: 023
     Dates: start: 20161219, end: 20161219

REACTIONS (1)
  - Skin necrosis [None]

NARRATIVE: CASE EVENT DATE: 20161219
